FAERS Safety Report 4267119-X (Version None)
Quarter: 2004Q1

REPORT INFORMATION
  Report Type: 
  Country: None (occurrence: None)
  Receive Date: 20040107
  Receipt Date: 20031222
  Transmission Date: 20041129
  Serious: Yes (Death)
  Sender: FDA-Public Use
  Company Number: A01200305554

PATIENT
  Age: 82 Year
  Sex: Female

DRUGS (9)
  1. PLAQUENIL [Suspect]
     Indication: RHEUMATOID ARTHRITIS
     Dosage: 200 MG, ORAL
     Route: 048
     Dates: start: 20030731
  2. CELEBREX [Suspect]
     Indication: RHEUMATOID ARTHRITIS
     Dosage: 100 MG BID, ORAL
     Route: 048
     Dates: start: 20030731
  3. TAMOFEN [Concomitant]
  4. FOSAMAX [Concomitant]
  5. LANSOPRAZOLE [Concomitant]
  6. WARFARIN SODIUM [Concomitant]
  7. CALCICHEW (CALCIUM CARBONATE) [Concomitant]
  8. FRUSEMIDE [Concomitant]
  9. CO-PROXAMOL [Concomitant]

REACTIONS (3)
  - HEPATIC HAEMORRHAGE [None]
  - HEPATIC STEATOSIS [None]
  - INTERNATIONAL NORMALISED RATIO INCREASED [None]
